FAERS Safety Report 15418043 (Version 1)
Quarter: 2018Q3

REPORT INFORMATION
  Report Type: Spontaneous
  Country: AU (occurrence: AU)
  Receive Date: 20180924
  Receipt Date: 20180924
  Transmission Date: 20181010
  Serious: Yes (Other)
  Sender: FDA-Public Use
  Company Number: AU-GLAXOSMITHKLINE-AU2018GSK171003

PATIENT
  Age: 34 Year
  Sex: Female

DRUGS (2)
  1. FLUTICASONE PROPIONATE+SALMETEROL XINAFOATE [Suspect]
     Active Substance: FLUTICASONE PROPIONATE\SALMETEROL XINAFOATE
     Indication: ASTHMA
     Dosage: 2 PUFF(S), BID
  2. IPRATROPIUM [Concomitant]
     Active Substance: IPRATROPIUM
     Indication: PRODUCT USED FOR UNKNOWN INDICATION
     Dosage: UNK UNK, PRN

REACTIONS (9)
  - Asthma [Recovering/Resolving]
  - Lower respiratory tract infection [Unknown]
  - Salivary gland mucocoele [Recovered/Resolved]
  - Product use issue [Unknown]
  - Bronchitis [Unknown]
  - Upper respiratory tract infection [Unknown]
  - Productive cough [Unknown]
  - Sinusitis [Unknown]
  - Chest discomfort [Unknown]
